FAERS Safety Report 5466077-X (Version None)
Quarter: 2007Q3

REPORT INFORMATION
  Report Type: 
  Country: None (occurrence: None)
  Receive Date: 20070924
  Receipt Date: 20070911
  Transmission Date: 20080115
  Serious: Yes (Hospitalization)
  Sender: FDA-Public Use
  Company Number: US-ELI_LILLY_AND_COMPANY-US200707005038

PATIENT
  Age: 14 Year
  Sex: Male

DRUGS (1)
  1. STRATTERA [Suspect]
     Dosage: UNK, UNK
     Route: 048
     Dates: start: 20050101

REACTIONS (6)
  - ACTIVATED PARTIAL THROMBOPLASTIN TIME PROLONGED [None]
  - PHARYNGITIS [None]
  - PLATELET FUNCTION TEST ABNORMAL [None]
  - POST PROCEDURAL HAEMORRHAGE [None]
  - SLEEP APNOEA SYNDROME [None]
  - THROMBOSIS [None]
